FAERS Safety Report 5649276-3 (Version None)
Quarter: 2008Q1

REPORT INFORMATION
  Report Type: 
  Country: None (occurrence: None)
  Receive Date: 20080131
  Receipt Date: 20071127
  Transmission Date: 20080703
  Serious: No
  Sender: FDA-Public Use
  Company Number: US200711006376

PATIENT
  Age: 45 Year
  Sex: Female
  Weight: 88 kg

DRUGS (8)
  1. BYETTA [Suspect]
     Indication: TYPE 2 DIABETES MELLITUS
     Dosage: 5 UG, 2/D, SUBCUTANEOUS
     Route: 058
     Dates: start: 20071001
  2. ACTOS [Concomitant]
  3. CYMBALTA [Concomitant]
  4. ADDERALL 10 [Concomitant]
  5. LAMICTAL [Concomitant]
  6. SYNTHROID [Concomitant]
  7. PREMARIN (ESTROGENS CONJUGATED, MEDROGESTONE) [Concomitant]
  8. VYTORIN [Concomitant]

REACTIONS (17)
  - ABDOMINAL DISTENSION [None]
  - ABDOMINAL PAIN UPPER [None]
  - ASTHENIA [None]
  - BLOOD GLUCOSE DECREASED [None]
  - BLOOD GLUCOSE INCREASED [None]
  - COLD SWEAT [None]
  - DECREASED APPETITE [None]
  - DEPRESSION [None]
  - DIZZINESS [None]
  - EARLY SATIETY [None]
  - ERUCTATION [None]
  - HEADACHE [None]
  - MOOD ALTERED [None]
  - NAUSEA [None]
  - PAIN [None]
  - TREMOR [None]
  - WEIGHT DECREASED [None]
